FAERS Safety Report 8296431-2 (Version None)
Quarter: 2012Q2

REPORT INFORMATION
  Report Type: 
  Country: None (occurrence: None)
  Receive Date: 20120418
  Receipt Date: 20120410
  Transmission Date: 20120825
  Serious: Yes (Hospitalization)
  Sender: FDA-Public Use
  Company Number: IE-MEDIMMUNE-MEDI-0014777

PATIENT
  Sex: Female
  Weight: 6.61 kg

DRUGS (3)
  1. SYNAGIS [Suspect]
     Route: 030
     Dates: start: 20111001, end: 20111201
  2. FERROUS SULFATE TAB [Concomitant]
  3. KAPSOVIT [Concomitant]

REACTIONS (4)
  - BRONCHIOLITIS [None]
  - VIRAL UPPER RESPIRATORY TRACT INFECTION [None]
  - GASTROENTERITIS [None]
  - NEUTROPENIA [None]
